FAERS Safety Report 14368672 (Version 2)
Quarter: 2018Q1

REPORT INFORMATION
  Report Type: Other
  Country: JP (occurrence: JP)
  Receive Date: 20180109
  Receipt Date: 20180208
  Transmission Date: 20180509
  Serious: Yes (Hospitalization)
  Sender: FDA-Public Use
  Company Number: JP-TERSERA THERAPEUTICS, LLC-2039766

PATIENT
  Age: 90 Year
  Sex: Male
  Weight: 55 kg

DRUGS (3)
  1. ZOLADEX [Suspect]
     Active Substance: GOSERELIN ACETATE
     Indication: PROSTATE CANCER
     Route: 058
     Dates: start: 20151009, end: 20160108
  2. RIVAROXABAN [Concomitant]
     Active Substance: RIVAROXABAN
     Route: 048
  3. BICALUTAMIDE. [Concomitant]
     Active Substance: BICALUTAMIDE
     Route: 048
     Dates: start: 20151009

REACTIONS (4)
  - Vascular pseudoaneurysm [Unknown]
  - Injection site haematoma [Recovering/Resolving]
  - Arterial injury [Recovered/Resolved]
  - Wrong technique in product usage process [Unknown]

NARRATIVE: CASE EVENT DATE: 20160108
